FAERS Safety Report 6291520-6 (Version None)
Quarter: 2009Q3

REPORT INFORMATION
  Report Type: 
  Country: None (occurrence: None)
  Receive Date: 20090730
  Receipt Date: 20090730
  Transmission Date: 20100115
  Serious: Yes (Other)
  Sender: FDA-Public Use
  Company Number: None

PATIENT
  Sex: Male

DRUGS (1)
  1. ATIVAN [Suspect]
     Dosage: Q 4 H IV
     Route: 042
     Dates: start: 20090722, end: 20090728

REACTIONS (1)
  - AGITATION [None]
